FAERS Safety Report 10061639 (Version 1)
Quarter: 2014Q2

REPORT INFORMATION
  Report Type: Spontaneous
  Country: US (occurrence: None)
  Receive Date: 20140404
  Receipt Date: 20140404
  Transmission Date: 20141212
  Serious: Yes (Other)
  Sender: FDA-Public Use
  Company Number: None

PATIENT
  Age: 49 Year
  Sex: Male
  Weight: 93.44 kg

DRUGS (1)
  1. JANUVIA [Suspect]
     Indication: BLOOD GLUCOSE DECREASED
     Route: 048
     Dates: start: 20140306

REACTIONS (6)
  - Fatigue [None]
  - Asthenia [None]
  - Confusional state [None]
  - Irritability [None]
  - Abdominal pain upper [None]
  - Groin pain [None]
